FAERS Safety Report 11288375 (Version 1)
Quarter: 2015Q3

REPORT INFORMATION
  Report Type: Spontaneous
  Country: US (occurrence: None)
  Receive Date: 20150720
  Receipt Date: 20150720
  Transmission Date: 20151125
  Serious: Yes (Other)
  Sender: FDA-Public Use
  Company Number: None

PATIENT
  Sex: Female

DRUGS (1)
  1. GENERIC NICOTINE PATCH [Suspect]
     Active Substance: NICOTINE
     Dosage: DAILY TRANSDERMAL
     Route: 062

REACTIONS (1)
  - Dermatitis contact [None]
